FAERS Safety Report 25532737 (Version 2)
Quarter: 2025Q3

REPORT INFORMATION
  Report Type: Spontaneous
  Country: US (occurrence: US)
  Receive Date: 20250709
  Receipt Date: 20250916
  Transmission Date: 20251020
  Serious: No
  Sender: TAKEDA
  Company Number: US-TAKEDA-2025TUS061708

PATIENT
  Age: 69 Year
  Sex: Female
  Weight: 66.7 kg

DRUGS (6)
  1. TRINTELLIX [Suspect]
     Active Substance: VORTIOXETINE HYDROBROMIDE
     Indication: Major depression
     Dosage: 5 MILLIGRAM, QD
     Dates: start: 20250707
  2. TRINTELLIX [Suspect]
     Active Substance: VORTIOXETINE HYDROBROMIDE
     Indication: Anxiety
  3. VRAYLAR [Concomitant]
     Active Substance: CARIPRAZINE
  4. KLONOPIN [Concomitant]
     Active Substance: CLONAZEPAM
  5. SEROQUEL [Concomitant]
     Active Substance: QUETIAPINE FUMARATE
  6. GABAPENTIN [Concomitant]
     Active Substance: GABAPENTIN

REACTIONS (7)
  - Discomfort [Recovered/Resolved]
  - Burning sensation [Unknown]
  - Anxiety [Not Recovered/Not Resolved]
  - Drug ineffective [Unknown]
  - Dizziness [Unknown]
  - Pruritus [Recovered/Resolved]
  - Hyperhidrosis [Unknown]

NARRATIVE: CASE EVENT DATE: 20250707
